FAERS Safety Report 15604716 (Version 1)
Quarter: 2018Q4

REPORT INFORMATION
  Report Type: Spontaneous
  Country: CZ (occurrence: CZ)
  Receive Date: 20181111
  Receipt Date: 20181111
  Transmission Date: 20190205
  Serious: Yes (Hospitalization, Other)
  Sender: FDA-Public Use
  Company Number: PHHY2018CZ150809

PATIENT
  Age: 64 Year
  Sex: Female

DRUGS (1)
  1. NILOTINIB [Suspect]
     Active Substance: NILOTINIB
     Indication: CHRONIC MYELOID LEUKAEMIA
     Dosage: UNK
     Route: 065
     Dates: start: 201301

REACTIONS (15)
  - Thrombocytopenia [Unknown]
  - Metastases to liver [Not Recovered/Not Resolved]
  - Decreased appetite [Recovered/Resolved]
  - Diffuse large B-cell lymphoma stage IV [Recovered/Resolved]
  - Type 2 diabetes mellitus [Unknown]
  - Asthenia [Recovered/Resolved]
  - Second primary malignancy [Recovered/Resolved]
  - Anaemia [Unknown]
  - Bicytopenia [Unknown]
  - Drug intolerance [Unknown]
  - Malignant neoplasm progression [Not Recovered/Not Resolved]
  - Lymphadenopathy mediastinal [Unknown]
  - Fatigue [Recovered/Resolved]
  - Chronic myeloid leukaemia [Not Recovered/Not Resolved]
  - Depressed mood [Unknown]

NARRATIVE: CASE EVENT DATE: 2013
